FAERS Safety Report 21388251 (Version 2)
Quarter: 2022Q3

REPORT INFORMATION
  Report Type: Spontaneous
  Country: BR (occurrence: BR)
  Receive Date: 20220928
  Receipt Date: 20220929
  Transmission Date: 20221027
  Serious: Yes (Death)
  Sender: FDA-Public Use
  Company Number: BR-PFIZER INC-PV202200071866

PATIENT
  Age: 45 Year
  Sex: Male
  Weight: 50 kg

DRUGS (2)
  1. SUTENT [Suspect]
     Active Substance: SUNITINIB MALATE
     Indication: Neoplasm malignant
     Dosage: UNK
     Dates: start: 201507, end: 201607
  2. SUTENT [Suspect]
     Active Substance: SUNITINIB MALATE
     Dosage: 4 DF, DAILY

REACTIONS (1)
  - Neoplasm progression [Fatal]

NARRATIVE: CASE EVENT DATE: 20160718
